FAERS Safety Report 12535266 (Version 1)
Quarter: 2016Q3

REPORT INFORMATION
  Report Type: Spontaneous
  Country: JP (occurrence: JP)
  Receive Date: 20160707
  Receipt Date: 20160707
  Transmission Date: 20161109
  Serious: Yes (Other)
  Sender: FDA-Public Use
  Company Number: JP-CIPLA LTD.-2012JP00485

PATIENT
  Age: 5 Year
  Sex: Male

DRUGS (2)
  1. CARBOPLATIN. [Suspect]
     Active Substance: CARBOPLATIN
     Indication: ASTROCYTOMA
     Dosage: 175 MG/M2, ON DAYS 0, 7, 14, 21, 42, 49, 56, AND 63
     Route: 042
  2. VINCRISTINE [Suspect]
     Active Substance: VINCRISTINE
     Indication: ASTROCYTOMA
     Dosage: 1.5 MG/M2 ON DAYS 0, 7, 14, 21, 28, 35, 42, 49, 56, AND 63
     Route: 040

REACTIONS (4)
  - Coma [Recovered/Resolved]
  - Disease progression [Unknown]
  - Hydrocephalus [Recovered/Resolved]
  - Treatment failure [Unknown]
